FAERS Safety Report 7417672-X (Version None)
Quarter: 2011Q2

REPORT INFORMATION
  Report Type: 
  Country: None (occurrence: None)
  Receive Date: 20110415
  Receipt Date: 20110407
  Transmission Date: 20111010
  Serious: Yes (Hospitalization)
  Sender: FDA-Public Use
  Company Number: PHHO2011JP01903

PATIENT
  Sex: Male

DRUGS (13)
  1. GOODMIN [Concomitant]
  2. CALCIUM POLYSTYRENE SULFONATE [Concomitant]
  3. LAXOBERON [Concomitant]
  4. ALISKIREN [Suspect]
     Indication: CARDIAC FAILURE
     Dosage: 150 MG, UNK
     Route: 048
     Dates: start: 20100628
  5. BLINDED ALISKIREN [Suspect]
     Dosage: CODE NOT BROKEN
     Route: 048
     Dates: start: 20100805
  6. LASIX [Concomitant]
  7. NORVASC [Concomitant]
  8. ENALAPRIL MALEATE [Suspect]
     Dosage: CODE NOT BROKEN
     Route: 048
     Dates: start: 20100805
  9. BLINDED NO TREATMENT RECEIVED [Suspect]
     Dosage: CODE NOT BROKEN
     Route: 048
     Dates: start: 20100805
  10. ENALAPRIL MALEATE [Suspect]
     Indication: CARDIAC FAILURE
     Dosage: 10 MG, UNK
     Route: 048
     Dates: start: 20100518
  11. ARTIST [Concomitant]
  12. WARFARIN [Concomitant]
  13. MAGLAX [Concomitant]

REACTIONS (7)
  - DYSPNOEA [None]
  - CARDIAC FAILURE [None]
  - VOLUME BLOOD INCREASED [None]
  - LOSS OF CONSCIOUSNESS [None]
  - CONTUSION [None]
  - CARDIAC FAILURE CONGESTIVE [None]
  - CHEST DISCOMFORT [None]
